FAERS Safety Report 4641311-4 (Version None)
Quarter: 2005Q2

REPORT INFORMATION
  Report Type: 
  Country: None (occurrence: None)
  Receive Date: 20050420
  Receipt Date: 20050420
  Transmission Date: 20051028
  Serious: Yes (Hospitalization)
  Sender: FDA-Public Use
  Company Number: None

PATIENT

DRUGS (2)
  1. WARFARIN SODIUM [Suspect]
     Dosage: 3 MG PO QD
     Route: 048
  2. DIGOXIN [Suspect]
     Indication: CARDIAC DISORDER
     Dosage: 0.125 MG QD FOR HEART

REACTIONS (3)
  - ELECTROCARDIOGRAM CHANGE [None]
  - INTERNATIONAL NORMALISED RATIO INCREASED [None]
  - THERAPEUTIC AGENT TOXICITY [None]
